FAERS Safety Report 8192966-1 (Version None)
Quarter: 2012Q1

REPORT INFORMATION
  Report Type: 
  Country: None (occurrence: None)
  Receive Date: 20120221
  Receipt Date: 20111023
  Transmission Date: 20120608
  Serious: No
  Sender: FDA-Public Use
  Company Number: 044235

PATIENT
  Sex: Female

DRUGS (1)
  1. LACOSAMIDE [Suspect]
     Dosage: (200 MG QD)
     Dates: start: 20091219

REACTIONS (1)
  - FATIGUE [None]
